FAERS Safety Report 9090057 (Version 1)
Quarter: 2013Q1

REPORT INFORMATION
  Report Type: Report from Study
  Country: JP (occurrence: JP)
  Receive Date: 20130201
  Receipt Date: 20130201
  Transmission Date: 20140127
  Serious: Yes (Hospitalization, Other)
  Sender: FDA-Public Use
  Company Number: JP-ASTELLAS-2009JP001623

PATIENT
  Age: 27 Year
  Sex: Male

DRUGS (40)
  1. TACROLIMUS CAPSULES [Suspect]
     Indication: LUPUS NEPHRITIS
     Dosage: 3 MG, UNKNOWN/D
     Route: 048
     Dates: start: 20070521, end: 20110501
  2. VOLTAREN [Suspect]
     Indication: PAIN
     Dosage: 75 MG, UNKNOWN/D
     Route: 048
     Dates: start: 20100513, end: 20101005
  3. VOLTAREN [Suspect]
     Indication: OSTEONECROSIS
  4. PREDNISOLONE [Concomitant]
     Indication: LUPUS NEPHRITIS
     Dosage: 10 MG, UNKNOWN/D
     Route: 048
  5. PREDNISOLONE [Concomitant]
     Dosage: 30 MG, UNKNOWN/D
     Route: 048
     Dates: start: 20070521, end: 20070618
  6. PREDNISOLONE [Concomitant]
     Dosage: 27.5 MG, UNKNOWN/D
     Route: 048
     Dates: start: 20070618, end: 20070703
  7. PREDNISOLONE [Concomitant]
     Dosage: 25 MG, UNKNOWN/D
     Route: 048
     Dates: start: 20070703, end: 20070717
  8. PREDNISOLONE [Concomitant]
     Dosage: 22.5 MG, UNKNOWN/D
     Route: 048
     Dates: start: 20070717, end: 20070731
  9. PREDNISOLONE [Concomitant]
     Dosage: 20 MG, UNKNOWN/D
     Route: 048
     Dates: start: 20070731, end: 20070813
  10. PREDNISOLONE [Concomitant]
     Dosage: 17.5 MG, UNKNOWN/D
     Route: 048
     Dates: start: 20070813, end: 20070828
  11. PREDNISOLONE [Concomitant]
     Dosage: 15 MG, UNKNOWN/D
     Route: 048
     Dates: start: 20070828, end: 20070925
  12. PREDNISOLONE [Concomitant]
     Dosage: 12.5 MG, UNKNOWN/D
     Route: 048
     Dates: start: 20070925, end: 20071015
  13. PREDNISOLONE [Concomitant]
     Dosage: 10 MG, UNKNOWN/D
     Route: 048
     Dates: start: 20071015, end: 20110501
  14. PREDNISOLONE [Concomitant]
     Dosage: 60 MG, UNKNOWN/D
     Route: 048
     Dates: start: 20110502
  15. NEUER [Concomitant]
     Dosage: 600 MG, UNKNOWN/D
     Route: 048
  16. CALCIUM LACTATE [Concomitant]
     Dosage: 2000 MG, UNKNOWN/D
     Route: 048
     Dates: end: 20101003
  17. CALCIUM LACTATE [Concomitant]
     Dosage: 1000 MG, UNKNOWN/D
     Route: 048
     Dates: start: 20101004
  18. ONEALFA [Concomitant]
     Dosage: 0.5 UG, UNKNOWN/D
     Route: 048
  19. PARIET [Concomitant]
     Dosage: 10 MG, UNKNOWN/D
     Route: 048
  20. BUFFERIN [Concomitant]
     Indication: LUPUS NEPHRITIS
     Dosage: 81 MG, UNKNOWN/D
     Route: 048
     Dates: end: 20080504
  21. BUFFERIN [Concomitant]
     Dosage: 81 MG, UNKNOWN/D
     Route: 048
     Dates: start: 20080526
  22. LIVALO [Concomitant]
     Dosage: 1 MG, UNKNOWN/D
     Route: 048
  23. LENDORMIN [Concomitant]
     Dosage: 0.25 MG, UNKNOWN/D
     Route: 048
     Dates: end: 20080121
  24. NU-LOTAN [Concomitant]
     Indication: LUPUS NEPHRITIS
     Dosage: 12.5 MG, UNKNOWN/D
     Route: 048
  25. NU-LOTAN [Concomitant]
     Dosage: 25 MG, UNKNOWN/D
     Route: 048
     Dates: end: 20100809
  26. FOSAMAC [Concomitant]
     Route: 048
  27. FOSAMAC [Concomitant]
     Dosage: 35 MG, WEEKLY
     Route: 048
     Dates: start: 20071119
  28. MAGNESIUM OXIDE [Concomitant]
     Dosage: 1.5 G, UNKNOWN/D
     Route: 048
     Dates: start: 20070604, end: 20080218
  29. LAC B [Concomitant]
     Indication: DIARRHOEA
     Dosage: 3000 MG, UNKNOWN/D
     Route: 048
     Dates: start: 20080703, end: 20080710
  30. LAC B [Concomitant]
     Dosage: 6000 MG, UNKNOWN/D
     Route: 048
     Dates: start: 20080810, end: 20080819
  31. LAC B [Concomitant]
     Dosage: 3000 MG, UNKNOWN/D
     Route: 048
     Dates: start: 20080922
  32. ALBUMIN TANNATE [Concomitant]
     Indication: DIARRHOEA
     Dosage: 3000 MG, UNKNOWN/D
     Route: 048
     Dates: start: 20080703, end: 20080708
  33. ALBUMIN TANNATE [Concomitant]
     Dosage: 6000 MG, UNKNOWN/D
     Route: 048
     Dates: start: 20080810, end: 20080819
  34. NERISONA [Concomitant]
     Indication: SKIN ULCER
     Route: 061
  35. GEBEN [Concomitant]
     Indication: SKIN ULCER
     Route: 061
  36. GASMOTIN [Concomitant]
     Dosage: 15 MG, UNKNOWN/D
     Route: 048
     Dates: start: 20090917
  37. OLMETEC [Concomitant]
     Indication: LUPUS NEPHRITIS
     Dosage: 20 MG, UNKNOWN/D
     Route: 048
     Dates: start: 20100810
  38. CYCLOPHOSPHAMIDE [Concomitant]
     Indication: LUPUS NEPHRITIS
     Dosage: 500 MG, UNKNOWN/D
     Route: 065
     Dates: start: 20110502, end: 20110502
  39. CYCLOPHOSPHAMIDE [Concomitant]
     Dosage: 500 MG, UNKNOWN/D
     Route: 065
     Dates: start: 20110516, end: 20110516
  40. PURSENNID /00142207/ [Concomitant]
     Indication: CONSTIPATION
     Dosage: UNK
     Route: 048
     Dates: start: 20070604, end: 20070611

REACTIONS (8)
  - Skin ulcer [Not Recovered/Not Resolved]
  - Enterocolitis [Recovering/Resolving]
  - Diarrhoea [Recovered/Resolved]
  - Gastroenteritis [Recovered/Resolved]
  - Pain [Recovering/Resolving]
  - Osteonecrosis [Recovering/Resolving]
  - Renal impairment [Recovered/Resolved]
  - Sjogren^s syndrome [Not Recovered/Not Resolved]
